FAERS Safety Report 9206020 (Version 1)
Quarter: 2013Q2

REPORT INFORMATION
  Report Type: Spontaneous
  Country: US (occurrence: None)
  Receive Date: 20130401
  Receipt Date: 20130401
  Transmission Date: 20140414
  Serious: Yes (Hospitalization)
  Sender: FDA-Public Use
  Company Number: HA13-085-AE (PATIENT NO. 1)

PATIENT
  Age: 50 Year
  Sex: Male
  Weight: 113.4 kg

DRUGS (1)
  1. NAPROXEN SODIUM [Suspect]
     Indication: BACK PAIN
     Dosage: 4 TABLETS WITHIN 3 DAYS, ORAL.
     Route: 048
     Dates: start: 20120914, end: 20120917

REACTIONS (1)
  - Atrial fibrillation [None]
